FAERS Safety Report 22053750 (Version 1)
Quarter: 2023Q1

REPORT INFORMATION
  Report Type: Spontaneous
  Country: CN (occurrence: CN)
  Receive Date: 20230302
  Receipt Date: 20230302
  Transmission Date: 20230418
  Serious: Yes (Other)
  Sender: FDA-Public Use
  Company Number: CN-SA-SAC20230301000283

PATIENT
  Age: 74 Year
  Sex: Male

DRUGS (2)
  1. PLAVIX [Suspect]
     Active Substance: CLOPIDOGREL BISULFATE
     Indication: Cataract
     Dosage: 75 MG, QD
     Route: 048
     Dates: start: 20230213, end: 20230215
  2. ASPIRIN [Suspect]
     Active Substance: ASPIRIN
     Indication: Cataract
     Dosage: 0.1 G, QD
     Route: 048
     Dates: start: 20230213, end: 20230214

REACTIONS (2)
  - Cerebral infarction [Unknown]
  - Haemorrhage [Unknown]

NARRATIVE: CASE EVENT DATE: 20230215
